FAERS Safety Report 10423797 (Version 2)
Quarter: 2014Q4

REPORT INFORMATION
  Report Type: Spontaneous
  Country: US (occurrence: US)
  Receive Date: 20140902
  Receipt Date: 20141006
  Transmission Date: 20150528
  Serious: Yes (Death, Hospitalization, Other)
  Sender: FDA-Public Use
  Company Number: US-009507513-1408USA017139

PATIENT
  Sex: Male
  Weight: 86.17 kg

DRUGS (2)
  1. JANUVIA [Suspect]
     Active Substance: SITAGLIPTIN PHOSPHATE
     Indication: TYPE 2 DIABETES MELLITUS
     Dosage: 50 MG, QD
     Route: 048
     Dates: start: 20101126, end: 201312
  2. JANUVIA [Suspect]
     Active Substance: SITAGLIPTIN PHOSPHATE
     Dosage: 100 MG, UNK
     Route: 048
     Dates: start: 20110629, end: 20131019

REACTIONS (33)
  - Ischaemic cardiomyopathy [Unknown]
  - Emphysema [Unknown]
  - Arteriosclerosis coronary artery [Unknown]
  - Fluid overload [Unknown]
  - Cardiac assistance device user [Unknown]
  - Pancreatic steatosis [Unknown]
  - Malignant ascites [Unknown]
  - Cholelithiasis [Unknown]
  - Pleural effusion [Unknown]
  - Metastases to peritoneum [Unknown]
  - Metastases to liver [Unknown]
  - Mesenteric vein thrombosis [Unknown]
  - Hypotension [Unknown]
  - Vena cava thrombosis [Unknown]
  - Portal vein thrombosis [Unknown]
  - Colonic fistula [Unknown]
  - Bile duct obstruction [Unknown]
  - Atelectasis [Unknown]
  - Peritonitis [Unknown]
  - Pancreatic carcinoma metastatic [Unknown]
  - Mesenteric neoplasm [Unknown]
  - Death [Fatal]
  - Septic shock [Unknown]
  - Escherichia bacteraemia [Unknown]
  - Neutropenia [Unknown]
  - Malnutrition [Unknown]
  - Metastases to adrenals [Unknown]
  - Dyslipidaemia [Unknown]
  - Renal vein thrombosis [Unknown]
  - Pneumonitis [Unknown]
  - Anaemia [Unknown]
  - Gallbladder perforation [Unknown]
  - Lymphadenopathy [Unknown]

NARRATIVE: CASE EVENT DATE: 201310
